FAERS Safety Report 4831939-0 (Version None)
Quarter: 2005Q4

REPORT INFORMATION
  Report Type: 
  Country: None (occurrence: None)
  Receive Date: 20051118
  Receipt Date: 20051018
  Transmission Date: 20060501
  Serious: Yes (Hospitalization)
  Sender: FDA-Public Use
  Company Number: HQWYE122020OCT05

PATIENT
  Sex: Female

DRUGS (5)
  1. ENBREL [Suspect]
     Indication: RHEUMATOID ARTHRITIS
     Dosage: 25 MG/VIAL, UNKNOWN
     Route: 058
     Dates: start: 20050101, end: 20050101
  2. UNSPECIFIED NON-STEROIDAL ANTI-INFLAMMATORY AGENT [Suspect]
     Indication: RHEUMATOID ARTHRITIS
     Dosage: UNKNOWN, TABLET
     Route: 048
  3. METHOTREXATE [Concomitant]
     Route: 048
     Dates: end: 20051001
  4. SULFASALAZINE [Concomitant]
     Indication: RHEUMATOID ARTHRITIS
     Dosage: UNKNOWN, TABLET
     Route: 048
     Dates: end: 20051001
  5. PREDNISONE [Concomitant]
     Indication: RHEUMATOID ARTHRITIS
     Dosage: UNKNOWN, TABLET
     Route: 048
     Dates: end: 20051001

REACTIONS (1)
  - HEPATITIS [None]
